FAERS Safety Report 19058877 (Version 1)
Quarter: 2021Q1

REPORT INFORMATION
  Report Type: Spontaneous
  Country: US (occurrence: US)
  Receive Date: 20210325
  Receipt Date: 20210325
  Transmission Date: 20210420
  Serious: No
  Sender: FDA-Public Use
  Company Number: US-MYLANLABS-2021M1016437

PATIENT
  Sex: Male
  Weight: 74 kg

DRUGS (1)
  1. LIDOCAINE PATCH [Suspect]
     Active Substance: LIDOCAINE
     Indication: PAIN IN EXTREMITY
     Dosage: ON FOR 12 HOURS
     Route: 003

REACTIONS (2)
  - Product adhesion issue [Unknown]
  - Off label use [Not Recovered/Not Resolved]
